FAERS Safety Report 21025730 (Version 1)
Quarter: 2022Q2

REPORT INFORMATION
  Report Type: Other
  Country: JP (occurrence: None)
  Receive Date: 20220630
  Receipt Date: 20220630
  Transmission Date: 20220721
  Serious: Yes (Other)
  Sender: FDA-Public Use
  Company Number: JP-ROCHE-3122585

PATIENT
  Age: 71 Year
  Sex: Male

DRUGS (13)
  1. BEVACIZUMAB [Suspect]
     Active Substance: BEVACIZUMAB
     Indication: Colon cancer
     Route: 065
  2. BEVACIZUMAB [Suspect]
     Active Substance: BEVACIZUMAB
     Indication: Colitis ulcerative
  3. IRINOTECAN [Suspect]
     Active Substance: IRINOTECAN
     Indication: Colon cancer
     Route: 065
  4. IRINOTECAN [Suspect]
     Active Substance: IRINOTECAN
     Indication: Colitis ulcerative
  5. MESALAMINE [Concomitant]
     Active Substance: MESALAMINE
  6. LEUCOVORIN [Concomitant]
     Active Substance: LEUCOVORIN
     Dates: start: 2012
  7. LEUCOVORIN [Concomitant]
     Active Substance: LEUCOVORIN
     Dates: start: 2012
  8. FLUOROURACIL [Concomitant]
     Active Substance: FLUOROURACIL
     Dates: start: 2012
  9. OXALIPLATIN [Concomitant]
     Active Substance: OXALIPLATIN
     Dates: start: 2012
  10. PANITUMUMAB [Concomitant]
     Active Substance: PANITUMUMAB
     Dates: start: 201510
  11. TRIFLURIDINE [Concomitant]
     Active Substance: TRIFLURIDINE
     Dates: start: 201601
  12. TIPIRACIL [Concomitant]
     Active Substance: TIPIRACIL
     Dates: start: 201601
  13. REGORAFENIB [Concomitant]
     Active Substance: REGORAFENIB
     Dosage: 50% REDUCED DOSE
     Dates: start: 201606

REACTIONS (4)
  - Aspartate aminotransferase increased [Unknown]
  - Alanine aminotransferase increased [Unknown]
  - Disease progression [Unknown]
  - Drug ineffective [Unknown]
